FAERS Safety Report 7072398-X (Version None)
Quarter: 2010Q4

REPORT INFORMATION
  Report Type: 
  Country: None (occurrence: None)
  Receive Date: 20101029
  Receipt Date: 20100312
  Transmission Date: 20110411
  Serious: No
  Sender: FDA-Public Use
  Company Number: A0840738A

PATIENT
  Age: 90 Year
  Sex: Male

DRUGS (13)
  1. ADVAIR DISKUS 100/50 [Suspect]
     Indication: PNEUMONITIS
     Dosage: 1PUFF TWICE PER DAY
     Route: 055
     Dates: start: 20100101
  2. ALBUTEROL [Concomitant]
  3. OMEPRAZOLE [Concomitant]
  4. RANEXA [Concomitant]
  5. GEMFIBROZIL [Concomitant]
  6. COUMADIN [Concomitant]
  7. ISOSORBID [Concomitant]
  8. FOSINOPRIL SODIUM [Concomitant]
  9. FUROSEMIDE [Concomitant]
  10. LIPITOR [Concomitant]
  11. TEMAZEPAM [Concomitant]
  12. VITAMIN D [Concomitant]
  13. POLYETHYLENE [Concomitant]

REACTIONS (2)
  - DYSPNOEA [None]
  - PRODUCT QUALITY ISSUE [None]
